FAERS Safety Report 22270916 (Version 1)
Quarter: 2023Q2

REPORT INFORMATION
  Report Type: Spontaneous
  Country: US (occurrence: US)
  Receive Date: 20230501
  Receipt Date: 20230501
  Transmission Date: 20230722
  Serious: Yes (Other)
  Sender: FDA-Public Use
  Company Number: US-AMERICAN REGENT INC-2023000986

PATIENT
  Sex: Male

DRUGS (10)
  1. DEXAMETHASONE SODIUM PHOSPHATE [Suspect]
     Active Substance: DEXAMETHASONE SODIUM PHOSPHATE
     Indication: Acute respiratory failure
     Dosage: 6 MILLIGRAM DAILY
     Route: 042
  2. DEXAMETHASONE SODIUM PHOSPHATE [Suspect]
     Active Substance: DEXAMETHASONE SODIUM PHOSPHATE
     Indication: COVID-19 pneumonia
  3. PROPOFOL [Suspect]
     Active Substance: PROPOFOL
     Indication: Sedation
     Dosage: 1.5 AND 4 MG/KG/HOUR; CUMULATIVE DOSE OF LESS THAN 140 MG/KG
     Route: 042
  4. NOREPINEPHRINE [Suspect]
     Active Substance: NOREPINEPHRINE
     Indication: Haemodynamic instability
     Dosage: UNK
     Route: 065
  5. CEFTRIAXONE [Concomitant]
     Active Substance: CEFTRIAXONE
     Indication: Acute respiratory failure
     Dosage: 1 GRAM DAILY
     Route: 042
  6. CEFTRIAXONE [Concomitant]
     Active Substance: CEFTRIAXONE
     Indication: COVID-19 pneumonia
  7. AZITHROMYCIN [Concomitant]
     Active Substance: AZITHROMYCIN
     Indication: Acute respiratory failure
     Dosage: 500 MILLIGRAM DAILY
     Route: 048
  8. AZITHROMYCIN [Concomitant]
     Active Substance: AZITHROMYCIN
     Indication: COVID-19 pneumonia
  9. OXYGEN [Concomitant]
     Active Substance: OXYGEN
     Indication: Acute respiratory failure
     Dosage: UNK
     Route: 065
  10. OXYGEN [Concomitant]
     Active Substance: OXYGEN
     Indication: COVID-19 pneumonia

REACTIONS (2)
  - Propofol infusion syndrome [Recovering/Resolving]
  - Product use in unapproved indication [Unknown]
